FAERS Safety Report 5883725-0 (Version None)
Quarter: 2008Q3

REPORT INFORMATION
  Report Type: 
  Country: None (occurrence: None)
  Receive Date: 20080911
  Receipt Date: 20080828
  Transmission Date: 20090109
  Serious: Yes (Hospitalization)
  Sender: FDA-Public Use
  Company Number: A-US2007-17785

PATIENT
  Age: 45 Year
  Sex: Female

DRUGS (10)
  1. TRACLEER [Suspect]
     Indication: PULMONARY HYPERTENSION
     Dosage: 125 MG, BID, ORAL, 62.5 MG, BID, ORAL
     Route: 048
     Dates: start: 20070701, end: 20070701
  2. TRACLEER [Suspect]
     Indication: PULMONARY HYPERTENSION
     Dosage: 125 MG, BID, ORAL, 62.5 MG, BID, ORAL
     Route: 048
     Dates: start: 20070701, end: 20080801
  3. PILOCARPINE [Concomitant]
  4. DARVOCET [Concomitant]
  5. PLAQUENIL [Concomitant]
  6. ALENDRONATE SODIUM [Concomitant]
  7. CALCIUM CARBONATE W/VITAMIN D NOS (VITAMIN D NOS, CALCIUM CARBONATE) [Concomitant]
  8. NEXIUM [Concomitant]
  9. FOLIC ACID [Concomitant]
  10. NIFEDIPINE [Concomitant]

REACTIONS (15)
  - AUTOIMMUNE HEPATITIS [None]
  - BIOPSY LIVER ABNORMAL [None]
  - BLOOD ALBUMIN DECREASED [None]
  - CHOLECYSTITIS [None]
  - CHROMATURIA [None]
  - FAECES DISCOLOURED [None]
  - HEART RATE IRREGULAR [None]
  - HEPATIC STEATOSIS [None]
  - HEPATOTOXICITY [None]
  - HYPERTENSION [None]
  - NICOTINE DEPENDENCE [None]
  - OEDEMA [None]
  - SCLERODERMA [None]
  - SWELLING FACE [None]
  - WEIGHT INCREASED [None]
